FAERS Safety Report 17335524 (Version 1)
Quarter: 2020Q1

REPORT INFORMATION
  Report Type: Spontaneous
  Country: ES (occurrence: ES)
  Receive Date: 20200128
  Receipt Date: 20200128
  Transmission Date: 20200409
  Serious: Yes (Hospitalization)
  Sender: FDA-Public Use
  Company Number: ES-TEVA-2020-ES-1174497

PATIENT
  Age: 87 Year
  Sex: Male

DRUGS (2)
  1. SINTROM [Interacting]
     Active Substance: ACENOCOUMAROL
     Indication: DEEP VEIN THROMBOSIS
     Dosage: SP, 2 MG
     Route: 048
     Dates: start: 20161114, end: 20190820
  2. AMOXICILINA CLAVULANICO [Suspect]
     Active Substance: AMOXICILLIN\CLAVULANATE POTASSIUM
     Indication: DEVICE RELATED INFECTION
     Dosage: 1 DOSAGE FORMS
     Route: 048
     Dates: start: 20170120

REACTIONS (3)
  - Melaena [Recovered/Resolved]
  - Hypocoagulable state [Recovered/Resolved]
  - Drug interaction [Unknown]

NARRATIVE: CASE EVENT DATE: 20190819
